FAERS Safety Report 4564138-0 (Version None)
Quarter: 2005Q1

REPORT INFORMATION
  Report Type: 
  Country: None (occurrence: None)
  Receive Date: 20050126
  Receipt Date: 20050112
  Transmission Date: 20050727
  Serious: No
  Sender: FDA-Public Use
  Company Number: 2005CG00161

PATIENT
  Age: 77 Year
  Sex: Male

DRUGS (9)
  1. IRESSA [Suspect]
     Indication: LUNG NEOPLASM MALIGNANT
     Dosage: 250 MG QD PO
     Route: 048
     Dates: start: 20041005, end: 20050114
  2. SOLUPRED [Concomitant]
  3. OXYGEN [Concomitant]
  4. SECTRAL ^AKITA^ [Concomitant]
  5. METFORMIN HCL [Concomitant]
  6. ADANCOR [Concomitant]
  7. CACIT [Concomitant]
  8. . [Concomitant]
  9. . [Concomitant]

REACTIONS (4)
  - DECUBITUS ULCER [None]
  - MALNUTRITION [None]
  - PARONYCHIA [None]
  - STOMATITIS [None]
